FAERS Safety Report 8925583 (Version 1)
Quarter: 2012Q4

REPORT INFORMATION
  Report Type: 
  Country: FR (occurrence: FR)
  Receive Date: 20121126
  Receipt Date: 20121126
  Transmission Date: 20130627
  Serious: Yes (Other)
  Sender: FDA-Public Use
  Company Number: FR-PFIZER INC-2012292274

PATIENT
  Age: 39 Year
  Sex: Female

DRUGS (2)
  1. ARACYTINE [Suspect]
     Indication: ACUTE MYELOBLASTIC LEUKEMIA
     Dosage: UNK
  2. DAUNORUBICIN [Suspect]
     Indication: ACUTE MYELOBLASTIC LEUKEMIA

REACTIONS (4)
  - Cellulitis [Unknown]
  - Septic shock [Unknown]
  - Klebsiella infection [Unknown]
  - Bone marrow failure [Unknown]
